FAERS Safety Report 17924888 (Version 2)
Quarter: 2020Q3

REPORT INFORMATION
  Report Type: Spontaneous
  Country: US (occurrence: US)
  Receive Date: 20200622
  Receipt Date: 20200807
  Transmission Date: 20201103
  Serious: No
  Sender: FDA-Public Use
  Company Number: US-SHIRE-US202020279

PATIENT
  Sex: Female
  Weight: 83.9 kg

DRUGS (5)
  1. PROCARDIA [Concomitant]
     Active Substance: NIFEDIPINE
     Indication: PRODUCT USED FOR UNKNOWN INDICATION
  2. METOPROLOL SUCCINATE. [Concomitant]
     Active Substance: METOPROLOL SUCCINATE
     Indication: PRODUCT USED FOR UNKNOWN INDICATION
  3. HYQVIA [Suspect]
     Active Substance: HUMAN IMMUNOGLOBULIN G\HYALURONIDASE RECOMBINANT HUMAN
     Dosage: 40 GRAM, EVERY 3?4 WEEK
     Route: 058
     Dates: start: 20200403
  4. HYQVIA [Suspect]
     Active Substance: HUMAN IMMUNOGLOBULIN G\HYALURONIDASE RECOMBINANT HUMAN
     Indication: PRODUCT USED FOR UNKNOWN INDICATION
     Dosage: 40 GRAM, EVERY 3?4 WEEK
     Route: 058
     Dates: start: 20200226
  5. METOPROLOL. [Concomitant]
     Active Substance: METOPROLOL
     Indication: PRODUCT USED FOR UNKNOWN INDICATION

REACTIONS (2)
  - Rash macular [Unknown]
  - Pyrexia [Recovered/Resolved]
